FAERS Safety Report 7374518-6 (Version None)
Quarter: 2011Q1

REPORT INFORMATION
  Report Type: 
  Country: None (occurrence: None)
  Receive Date: 20110325
  Receipt Date: 20100222
  Transmission Date: 20110831
  Serious: No
  Sender: FDA-Public Use
  Company Number: US-MYLANLABS-2010S1001954

PATIENT
  Age: 49 Year
  Sex: Female
  Weight: 52.16 kg

DRUGS (9)
  1. OXYCONTIN [Concomitant]
     Indication: BACK PAIN
     Route: 048
  2. DARVOCET [Concomitant]
     Indication: BACK PAIN
     Dosage: 100MG/650MG
     Route: 048
  3. PROMETHAZINE [Concomitant]
     Indication: NAUSEA
     Route: 048
  4. FENTANYL-100 [Suspect]
     Indication: BACK PAIN
     Dosage: CHANGED Q72H
     Route: 062
     Dates: start: 20070101
  5. AMITRIPTYLINE [Concomitant]
     Indication: INSOMNIA
  6. LEVOTHYROXINE SODIUM [Concomitant]
     Indication: THYROID DISORDER
     Route: 048
  7. DIAZEPAM [Concomitant]
     Indication: BACK PAIN
     Dosage: PRN
     Route: 048
  8. LYRICA [Concomitant]
     Indication: BACK PAIN
     Route: 048
     Dates: start: 20070101
  9. TRAMADOL HCL [Concomitant]
     Indication: BACK PAIN
     Route: 048

REACTIONS (4)
  - HEART RATE INCREASED [None]
  - PAIN IN EXTREMITY [None]
  - DRUG EFFECT INCREASED [None]
  - CHEST PAIN [None]
